FAERS Safety Report 5546574-9 (Version None)
Quarter: 2007Q4

REPORT INFORMATION
  Report Type: 
  Country: None (occurrence: None)
  Receive Date: 20071211
  Receipt Date: 20070213
  Transmission Date: 20080405
  Serious: No
  Sender: FDA-Public Use
  Company Number: US-AMGEN-KDL207167

PATIENT
  Sex: Female
  Weight: 59 kg

DRUGS (9)
  1. ENBREL [Suspect]
     Indication: RHEUMATOID ARTHRITIS
     Route: 058
     Dates: start: 20051215
  2. METHOTREXATE [Concomitant]
     Route: 058
     Dates: start: 19930101
  3. FOLIC ACID [Concomitant]
  4. FOSAMAX [Concomitant]
  5. PREDNISONE [Concomitant]
  6. LEUCOVORIN CALCIUM [Concomitant]
  7. CALCIUM [Concomitant]
  8. VITAMIN CAP [Concomitant]
  9. MAXZIDE [Concomitant]

REACTIONS (1)
  - NASOPHARYNGITIS [None]
